FAERS Safety Report 12208012 (Version 1)
Quarter: 2016Q1

REPORT INFORMATION
  Report Type: Spontaneous
  Country: US (occurrence: US)
  Receive Date: 20160324
  Receipt Date: 20160324
  Transmission Date: 20160526
  Serious: Yes (Other)
  Sender: FDA-Public Use
  Company Number: US-ASTRAZENECA-2016SE31480

PATIENT
  Age: 20859 Day
  Sex: Male
  Weight: 71.7 kg

DRUGS (9)
  1. SYMBICORT [Suspect]
     Active Substance: BUDESONIDE\FORMOTEROL FUMARATE DIHYDRATE
     Indication: CHRONIC OBSTRUCTIVE PULMONARY DISEASE
     Dosage: 160/4.5 2 PUFFS TWICE DAILY
     Route: 055
     Dates: start: 20160317
  2. LISINOPRIL. [Suspect]
     Active Substance: LISINOPRIL
     Indication: STENT PLACEMENT
     Route: 048
     Dates: start: 2010
  3. LEVAQUIN [Concomitant]
     Active Substance: LEVOFLOXACIN
     Route: 048
     Dates: start: 20160311, end: 20160317
  4. CLOPIDOGREL BISULFATE. [Concomitant]
     Active Substance: CLOPIDOGREL BISULFATE
     Indication: STENT PLACEMENT
     Route: 048
     Dates: start: 2010
  5. DAILY ASPIRIN [Concomitant]
     Indication: STENT PLACEMENT
     Route: 048
     Dates: start: 2010
  6. METOPROLOL TARTRATE. [Concomitant]
     Active Substance: METOPROLOL TARTRATE
     Indication: STENT PLACEMENT
     Route: 048
     Dates: start: 2010
  7. NICOTINE. [Concomitant]
     Active Substance: NICOTINE
     Indication: EX-TOBACCO USER
     Route: 048
     Dates: start: 20160316
  8. CRESTOR [Suspect]
     Active Substance: ROSUVASTATIN CALCIUM
     Indication: STENT PLACEMENT
     Route: 048
     Dates: start: 2010
  9. MULTIVITAMIN [Concomitant]
     Active Substance: VITAMINS
     Indication: ADJUVANT THERAPY
     Route: 048
     Dates: start: 2000

REACTIONS (1)
  - Epistaxis [Recovered/Resolved]

NARRATIVE: CASE EVENT DATE: 20160321
